FAERS Safety Report 5944167-2 (Version None)
Quarter: 2008Q4

REPORT INFORMATION
  Report Type: 
  Country: None (occurrence: None)
  Receive Date: 20081104
  Receipt Date: 20081020
  Transmission Date: 20090506
  Serious: Yes (Hospitalization)
  Sender: FDA-Public Use
  Company Number: 2008BI026692

PATIENT
  Age: 48 Year
  Sex: Female

DRUGS (6)
  1. TYSABRI [Suspect]
     Indication: MULTIPLE SCLEROSIS
     Dosage: 300 MG QM IV
     Route: 042
     Dates: start: 20080804
  2. IBUPROFEN TABLETS [Concomitant]
  3. LASIX [Concomitant]
  4. LEVOXYL [Concomitant]
  5. POTASSIUM CHLORIDE [Concomitant]
  6. AVONEX [Concomitant]

REACTIONS (18)
  - ASTHENIA [None]
  - BACK PAIN [None]
  - BALANCE DISORDER [None]
  - BLINDNESS [None]
  - CELLULITIS [None]
  - CEREBRAL ATROPHY [None]
  - CONDITION AGGRAVATED [None]
  - COORDINATION ABNORMAL [None]
  - DRUG DOSE OMISSION [None]
  - FATIGUE [None]
  - GAIT DISTURBANCE [None]
  - MULTIPLE SCLEROSIS [None]
  - MUSCLE SPASTICITY [None]
  - MUSCULAR WEAKNESS [None]
  - NIGHT SWEATS [None]
  - RADIAL NERVE PALSY [None]
  - VENOUS INSUFFICIENCY [None]
  - WEIGHT INCREASED [None]
